FAERS Safety Report 24067690 (Version 5)
Quarter: 2025Q3

REPORT INFORMATION
  Report Type: Report from Study
  Country: CA (occurrence: CA)
  Receive Date: 20240710
  Receipt Date: 20250903
  Transmission Date: 20251021
  Serious: Yes (Hospitalization, Other)
  Sender: RANBAXY
  Company Number: CA-SUN PHARMACEUTICAL INDUSTRIES LTD-2024R1-436298

PATIENT
  Sex: Female

DRUGS (10)
  1. TILDRAKIZUMAB [Suspect]
     Active Substance: TILDRAKIZUMAB
     Indication: Psoriasis
     Route: 058
     Dates: start: 20240304
  2. TILDRAKIZUMAB [Suspect]
     Active Substance: TILDRAKIZUMAB
     Route: 058
     Dates: start: 20240304
  3. TILDRAKIZUMAB [Suspect]
     Active Substance: TILDRAKIZUMAB
     Route: 058
     Dates: start: 20240304, end: 20250528
  4. OLMESARTAN [Concomitant]
     Active Substance: OLMESARTAN
     Indication: Product used for unknown indication
     Route: 065
  5. HYDROCHLOROTHIAZIDE [Concomitant]
     Active Substance: HYDROCHLOROTHIAZIDE
     Indication: Product used for unknown indication
     Route: 065
  6. LEVOTHYROXINE [Concomitant]
     Active Substance: LEVOTHYROXINE
     Indication: Product used for unknown indication
     Route: 065
  7. SODIUM [Concomitant]
     Active Substance: SODIUM
     Indication: Product used for unknown indication
     Dosage: 0.1 MILLIGRAM, DAILY
     Route: 065
  8. Vitamin Calcium [Concomitant]
     Indication: Product used for unknown indication
     Route: 065
  9. Magnesium +D3 [Concomitant]
     Indication: Product used for unknown indication
     Route: 065
  10. Jamieson D3 [Concomitant]
     Indication: Product used for unknown indication
     Route: 065

REACTIONS (12)
  - Syncope [Unknown]
  - Hypertension [Unknown]
  - Skin discolouration [Unknown]
  - Pruritus [Unknown]
  - Muscle tightness [Unknown]
  - Muscle spasms [Unknown]
  - Constipation [Unknown]
  - Drug ineffective [Unknown]
  - Condition aggravated [Unknown]
  - Product dose omission issue [Unknown]
  - Off label use [Unknown]
  - Therapy cessation [Unknown]

NARRATIVE: CASE EVENT DATE: 20240402
